FAERS Safety Report 9186292 (Version 1)
Quarter: 2013Q1

REPORT INFORMATION
  Report Type: Spontaneous
  Country: US (occurrence: None)
  Receive Date: 20130321
  Receipt Date: 20130321
  Transmission Date: 20140127
  Serious: Yes (Other)
  Sender: FDA-Public Use
  Company Number: 1641857

PATIENT
  Sex: 0

DRUGS (9)
  1. DIGOXIN [Suspect]
     Indication: PRODUCT USED FOR UNKNOWN INDICATION
  2. DIGOXIN [Suspect]
     Indication: PRODUCT USED FOR UNKNOWN INDICATION
  3. DIGOXIN [Suspect]
  4. DIGOXIN [Suspect]
  5. DIGOXIN [Suspect]
  6. DOPAMINE HYDROCHLORIDE [Suspect]
  7. FUROSEMIDE [Suspect]
  8. SPIRONOLACTONE [Suspect]
  9. METOLAZONE [Suspect]

REACTIONS (1)
  - Allergic myocarditis [None]
